FAERS Safety Report 25967495 (Version 2)
Quarter: 2025Q4

REPORT INFORMATION
  Report Type: Report from Study
  Country: CA (occurrence: CA)
  Receive Date: 20251028
  Receipt Date: 20251110
  Transmission Date: 20260117
  Serious: Yes (Other)
  Sender: ALEXION PHARMACEUTICALS
  Company Number: CA-AstraZeneca-CH-00978384A

PATIENT
  Sex: Female

DRUGS (7)
  1. CAPIVASERTIB [Suspect]
     Active Substance: CAPIVASERTIB
     Indication: HER2 positive breast cancer
     Dosage: 200 MILLIGRAM, BID
     Dates: start: 20250415
  2. METOPROLOL [Concomitant]
     Active Substance: METOPROLOL
     Dosage: UNK
     Route: 065
  3. FULVESTRANT [Concomitant]
     Active Substance: FULVESTRANT
     Dosage: UNK
  4. LETROZOLE [Concomitant]
     Active Substance: LETROZOLE
     Indication: Breast conserving surgery
     Dosage: UNK
  5. LETROZOLE [Concomitant]
     Active Substance: LETROZOLE
     Indication: Radiotherapy
  6. IBRANCE [Concomitant]
     Active Substance: PALBOCICLIB
     Indication: Radiotherapy
     Dosage: UNK
     Route: 065
  7. IBRANCE [Concomitant]
     Active Substance: PALBOCICLIB
     Indication: Breast conserving surgery

REACTIONS (2)
  - Hallucination [Unknown]
  - Confusional state [Unknown]
